FAERS Safety Report 5362817-9 (Version None)
Quarter: 2007Q2

REPORT INFORMATION
  Report Type: 
  Country: None (occurrence: None)
  Receive Date: 20070612
  Receipt Date: 20070604
  Transmission Date: 20071010
  Serious: Yes (Hospitalization)
  Sender: FDA-Public Use
  Company Number: 157027ISR

PATIENT
  Sex: Male

DRUGS (1)
  1. ATENOLOL [Suspect]

REACTIONS (1)
  - PHOTOSENSITIVITY ALLERGIC REACTION [None]
